FAERS Safety Report 10931560 (Version 1)
Quarter: 2015Q1

REPORT INFORMATION
  Report Type: Report from Study
  Country: BR (occurrence: BR)
  Receive Date: 20150319
  Receipt Date: 20150319
  Transmission Date: 20150721
  Serious: Yes (Death, Other)
  Sender: FDA-Public Use
  Company Number: PHHY2015BR032854

PATIENT
  Sex: Female

DRUGS (1)
  1. EXELON PATCH [Suspect]
     Active Substance: RIVASTIGMINE
     Indication: PROPHYLAXIS
     Dosage: 4.6 MG, QD (PATCH 5 CM2)
     Route: 062
     Dates: start: 201407

REACTIONS (3)
  - Femur fracture [Fatal]
  - Chronic obstructive pulmonary disease [Fatal]
  - Product use issue [Unknown]
